FAERS Safety Report 8121263 (Version 3)
Quarter: 2013Q4

REPORT INFORMATION
  Report Type: Spontaneous
  Country: JP (occurrence: JP)
  Receive Date: 20110906
  Receipt Date: 20131006
  Transmission Date: 20140711
  Serious: Yes (Congenital Anomaly, Other)
  Sender: FDA-Public Use
  Company Number: PHHY2011JP77953

PATIENT
  Sex: Female
  Weight: 3 kg

DRUGS (2)
  1. FEMARA [Suspect]
     Dosage: 5 MG, PER DAY (MOTHER DOSE)
     Route: 064
  2. FOLLISTIM [Concomitant]

REACTIONS (8)
  - Limb malformation [Unknown]
  - Syndactyly [Unknown]
  - Developmental hip dysplasia [Unknown]
  - Congenital knee dislocation [Unknown]
  - Talipes [Unknown]
  - Fibula agenesis [Unknown]
  - Jaundice [Unknown]
  - Foetal exposure timing unspecified [Unknown]
